FAERS Safety Report 7903649-4 (Version None)
Quarter: 2011Q4

REPORT INFORMATION
  Report Type: 
  Country: None (occurrence: None)
  Receive Date: 20111109
  Receipt Date: 20111101
  Transmission Date: 20120403
  Serious: Yes (Other)
  Sender: FDA-Public Use
  Company Number: US-JNJFOC-20110507997

PATIENT
  Age: 64 Year
  Sex: Female
  Weight: 80.74 kg

DRUGS (8)
  1. LISTERINE TOTAL CARE PLUS WHITENING [Suspect]
     Indication: DENTAL DISORDER PROPHYLAXIS
     Dosage: HALF CAPFUL
     Route: 048
     Dates: start: 20110513, end: 20110514
  2. SIMVASTATIN [Concomitant]
     Indication: BLOOD CHOLESTEROL INCREASED
     Route: 065
  3. EFFEXOR [Concomitant]
     Indication: DEPRESSION
     Route: 065
  4. LISINOPRIL [Concomitant]
     Indication: HYPERTENSION
     Route: 065
  5. MATURE MULTIVITAMINS [Concomitant]
     Indication: NUTRITIONAL SUPPORT
     Route: 065
  6. FISH OIL [Concomitant]
     Indication: NUTRITIONAL SUPPORT
     Route: 065
  7. SYNTHROID [Concomitant]
     Indication: HYPOTHYROIDISM
     Dosage: 100 MCG
     Route: 065
  8. GLUCOSAMINE [Concomitant]
     Indication: NUTRITIONAL SUPPORT
     Route: 065

REACTIONS (13)
  - SWELLING FACE [None]
  - PAIN [None]
  - FEELING HOT [None]
  - CHEMICAL BURN OF GASTROINTESTINAL TRACT [None]
  - DEFORMITY [None]
  - OROPHARYNGEAL BLISTERING [None]
  - UNEVALUABLE EVENT [None]
  - GINGIVAL SWELLING [None]
  - LIP SWELLING [None]
  - APHAGIA [None]
  - ORAL PAIN [None]
  - PAIN IN JAW [None]
  - INSOMNIA [None]
